FAERS Safety Report 6438367-5 (Version None)
Quarter: 2009Q4

REPORT INFORMATION
  Report Type: 
  Country: None (occurrence: None)
  Receive Date: 20091112
  Receipt Date: 20091104
  Transmission Date: 20100525
  Serious: Yes (Hospitalization)
  Sender: FDA-Public Use
  Company Number: US-ABBOTT-09P-163-0603987-00

PATIENT
  Sex: Female
  Weight: 74.456 kg

DRUGS (10)
  1. HUMIRA [Suspect]
     Indication: RHEUMATOID ARTHRITIS
     Route: 058
     Dates: start: 20060101, end: 20080601
  2. HUMIRA [Suspect]
     Route: 058
     Dates: start: 20081021
  3. MELOXICAM [Suspect]
     Indication: RHEUMATOID ARTHRITIS
     Route: 048
     Dates: end: 20080801
  4. MELOXICAM [Suspect]
     Dates: start: 20090301
  5. METHOTREXATE [Concomitant]
     Indication: ASTHMA
     Route: 048
  6. ADVAIR DISKUS 100/50 [Concomitant]
     Indication: ASTHMA
     Route: 055
  7. FOLIC ACID [Concomitant]
     Indication: VITAMIN SUPPLEMENTATION
     Route: 048
  8. FUROSEMIDE [Concomitant]
     Indication: FLUID RETENTION
     Route: 048
  9. PREMARIN [Concomitant]
     Indication: HORMONE REPLACEMENT THERAPY
     Route: 048
  10. ZOLOFT [Concomitant]
     Indication: DEPRESSION
     Route: 048

REACTIONS (7)
  - ARTHRALGIA [None]
  - DIVERTICULUM [None]
  - DRUG INEFFECTIVE [None]
  - EPISTAXIS [None]
  - JOINT SWELLING [None]
  - VOMITING [None]
  - WEIGHT DECREASED [None]
